FAERS Safety Report 8532464-6 (Version None)
Quarter: 2012Q3

REPORT INFORMATION
  Report Type: 
  Country: None (occurrence: None)
  Receive Date: 20120716
  Receipt Date: 20120716
  Transmission Date: 20120928
  Serious: Yes (Other)
  Sender: FDA-Public Use
  Company Number: None

PATIENT
  Sex: Female

DRUGS (5)
  1. PRADAXA [Suspect]
     Indication: ATRIAL FIBRILLATION
     Dosage: 150MG 2 TIMES A  DAY PO FEW DAYS
     Route: 048
  2. CADOR [Concomitant]
  3. METRAPOL [Concomitant]
  4. MAXITE [Concomitant]
  5. DILTIAZEM [Concomitant]

REACTIONS (1)
  - OEDEMA PERIPHERAL [None]
